FAERS Safety Report 20221288 (Version 1)
Quarter: 2021Q4

REPORT INFORMATION
  Report Type: Spontaneous
  Country: US (occurrence: None)
  Receive Date: 20211223
  Receipt Date: 20211223
  Transmission Date: 20220303
  Serious: Yes (Hospitalization)
  Sender: FDA-Public Use
  Company Number: US-ROCHE-2983583

PATIENT
  Sex: Female

DRUGS (16)
  1. XOLAIR [Suspect]
     Active Substance: OMALIZUMAB
     Indication: Asthma
     Dosage: I
     Route: 058
  2. ASPIRIN [Concomitant]
     Active Substance: ASPIRIN
  3. AZELASTINE [Concomitant]
     Active Substance: AZELASTINE
  4. BUDESONIDE [Concomitant]
     Active Substance: BUDESONIDE
     Dosage: 0.5MG/2
  5. BUSPIRONE [Concomitant]
     Active Substance: BUSPIRONE HYDROCHLORIDE
  6. CYANOCOBALAMIN [Concomitant]
     Active Substance: CYANOCOBALAMIN
  7. DULERA [Concomitant]
     Active Substance: FORMOTEROL FUMARATE DIHYDRATE\MOMETASONE FUROATE
     Dosage: AER 200-5 MCG
  8. EPIPEN [Concomitant]
     Active Substance: EPINEPHRINE
  9. LEVOTHYROXINE [Concomitant]
     Active Substance: LEVOTHYROXINE
  10. LINZESS [Concomitant]
     Active Substance: LINACLOTIDE
  11. MAGNESIUM [Concomitant]
     Active Substance: MAGNESIUM
  12. NEXIUM [Concomitant]
     Active Substance: ESOMEPRAZOLE MAGNESIUM
  13. ONDANSETRON [Concomitant]
     Active Substance: ONDANSETRON
  14. PREVACID [Concomitant]
     Active Substance: LANSOPRAZOLE
  15. XOPENEX [Concomitant]
     Active Substance: LEVALBUTEROL HYDROCHLORIDE
     Dosage: NEB
  16. XOPENEX HFA [Concomitant]
     Active Substance: LEVALBUTEROL TARTRATE
     Dosage: AER

REACTIONS (1)
  - Thrombosis [Unknown]
